FAERS Safety Report 7622978-5 (Version None)
Quarter: 2011Q3

REPORT INFORMATION
  Report Type: 
  Country: None (occurrence: None)
  Receive Date: 20110720
  Receipt Date: 20110704
  Transmission Date: 20111222
  Serious: Yes (Hospitalization)
  Sender: FDA-Public Use
  Company Number: JP-JNJFOC-20110600660

PATIENT
  Sex: Female
  Weight: 39 kg

DRUGS (18)
  1. PREDNISOLONE [Concomitant]
     Indication: PYODERMA GANGRENOSUM
     Route: 065
     Dates: start: 20090901
  2. ROHYPNOL [Concomitant]
     Indication: INSOMNIA
     Route: 048
  3. LANSOPRAZOLE [Concomitant]
     Indication: GASTRIC ULCER
  4. DEPAKENE [Concomitant]
     Indication: PAIN
     Route: 048
  5. REMICADE [Suspect]
     Route: 042
     Dates: start: 20050401
  6. PREDNISOLONE [Concomitant]
     Route: 065
  7. PLETAL [Concomitant]
     Indication: ARTERIOSCLEROSIS OBLITERANS
     Route: 048
  8. FERROUS CITRATE [Concomitant]
     Indication: IRON DEFICIENCY ANAEMIA
     Route: 048
  9. BIOFERMIN [Concomitant]
     Indication: INFLAMMATORY BOWEL DISEASE
     Route: 048
  10. ARIMIDEX [Concomitant]
     Indication: BREAST CANCER
     Route: 048
  11. REMICADE [Suspect]
     Indication: PYODERMA GANGRENOSUM
     Route: 042
     Dates: start: 20060925
  12. NEORAL [Concomitant]
     Indication: PYODERMA GANGRENOSUM
     Route: 065
  13. OLMESARTAN MEDOXOMIL [Concomitant]
     Indication: HYPERTENSION
     Route: 048
  14. SULFASALAZINE [Concomitant]
     Indication: INFLAMMATORY BOWEL DISEASE
  15. REMICADE [Suspect]
     Route: 042
     Dates: start: 20061010
  16. NEORAL [Concomitant]
     Route: 065
     Dates: start: 20060901
  17. ALFAROL [Concomitant]
     Indication: OSTEOPOROSIS
     Route: 048
  18. SULFAMETHOXAZOLE [Concomitant]
     Indication: INFECTION PROPHYLAXIS
     Route: 048

REACTIONS (6)
  - PYODERMA GANGRENOSUM [None]
  - INFLAMMATORY BOWEL DISEASE [None]
  - BREAST CANCER [None]
  - LOSS OF CONSCIOUSNESS [None]
  - INFUSION RELATED REACTION [None]
  - DIABETES MELLITUS [None]
